FAERS Safety Report 8817128 (Version 1)
Quarter: 2012Q4

REPORT INFORMATION
  Report Type: Spontaneous
  Country: US (occurrence: None)
  Receive Date: 20121003
  Receipt Date: 20121003
  Transmission Date: 20130627
  Serious: No
  Sender: FDA-Public Use
  Company Number: None

PATIENT
  Age: 66 Year
  Sex: Female

DRUGS (1)
  1. INFED 100MG -WATSON PHARMA [Suspect]
     Indication: IRON DEFICIENCY ANAEMIA
     Route: 042
     Dates: start: 20121001

REACTIONS (11)
  - Feeling hot [None]
  - Back pain [None]
  - Syncope [None]
  - Oxygen saturation decreased [None]
  - Vomiting [None]
  - Malaise [None]
  - Blood pressure systolic increased [None]
  - Pallor [None]
  - Nausea [None]
  - Pain in extremity [None]
  - Feeling abnormal [None]
